FAERS Safety Report 18290016 (Version 1)
Quarter: 2020Q3

REPORT INFORMATION
  Report Type: Spontaneous
  Country: PL (occurrence: PL)
  Receive Date: 20200921
  Receipt Date: 20200921
  Transmission Date: 20201103
  Serious: Yes (Other)
  Sender: FDA-Public Use
  Company Number: NVSC2020PL253467

PATIENT
  Age: 46 Year
  Weight: 68 kg

DRUGS (4)
  1. CALCIUM FOLINATE [Suspect]
     Active Substance: LEUCOVORIN CALCIUM
     Indication: GASTRIC CANCER
     Dosage: 354 (DOSE: 354; DOSE UNIT: NOT SPECIFIED)
     Route: 042
     Dates: start: 20180109, end: 20180220
  2. OXALIPLATIN. [Suspect]
     Active Substance: OXALIPLATIN
     Indication: GASTRIC CANCER
     Dosage: 150 MG
     Route: 042
     Dates: start: 20180109, end: 20180220
  3. FLUOROURACIL. [Suspect]
     Active Substance: FLUOROURACIL
     Indication: GASTRIC CANCER
     Dosage: 1062 (DOSE: 1062; DOSE UNIT: NOT SPECIFIED) (PUMP)
     Route: 041
     Dates: start: 20180109, end: 20180220
  4. FLUOROURACIL. [Suspect]
     Active Substance: FLUOROURACIL
     Dosage: 708 (DOSE: 708; DOSE UNIT: NOT SPECIFIED)
     Route: 040
     Dates: start: 20180109, end: 20180220

REACTIONS (1)
  - Neutropenia [Unknown]

NARRATIVE: CASE EVENT DATE: 20180306
